FAERS Safety Report 11070548 (Version 2)
Quarter: 2015Q2

REPORT INFORMATION
  Report Type: Spontaneous
  Country: IT (occurrence: IT)
  Receive Date: 20150427
  Receipt Date: 20150604
  Transmission Date: 20150821
  Serious: Yes (Hospitalization)
  Sender: FDA-Public Use
  Company Number: IT-BRISTOL-MYERS SQUIBB COMPANY-BMS-2015-024340

PATIENT
  Age: 73 Year
  Sex: Female
  Weight: 72 kg

DRUGS (6)
  1. COUMADIN [Suspect]
     Active Substance: WARFARIN SODIUM
     Indication: ATRIAL FIBRILLATION
     Dosage: 5 MG, PRN
     Route: 048
     Dates: start: 20140528, end: 20140612
  2. METFONORM [Concomitant]
     Indication: TACHYARRHYTHMIA
     Route: 065
  3. CARVASIN [Concomitant]
     Active Substance: ISOSORBIDE DINITRATE
     Indication: ANGINA PECTORIS
     Dosage: 5 MG, UNK
     Route: 060
  4. TRINIPLAS [Concomitant]
     Active Substance: NITROGLYCERIN
     Indication: ANGINA PECTORIS
     Dosage: 5 MG, UNK
     Route: 062
     Dates: end: 20140621
  5. DAFLON                             /00426001/ [Concomitant]
     Active Substance: DIOSMIN
     Indication: VASCULAR INSUFFICIENCY
     Dosage: 1500 MG, UNK
     Route: 048
     Dates: end: 20140614
  6. SOTALOL. [Concomitant]
     Active Substance: SOTALOL
     Indication: DIABETES MELLITUS
     Dosage: 500 MG, UNK
     Route: 048
     Dates: end: 20140615

REACTIONS (4)
  - Retroperitoneal haemorrhage [Recovered/Resolved]
  - Shock haemorrhagic [Recovered/Resolved]
  - Arthralgia [Recovered/Resolved]
  - Renal haemorrhage [Recovered/Resolved]

NARRATIVE: CASE EVENT DATE: 20140612
